FAERS Safety Report 7515419-X (Version None)
Quarter: 2011Q2

REPORT INFORMATION
  Report Type: 
  Country: None (occurrence: None)
  Receive Date: 20110601
  Receipt Date: 20110513
  Transmission Date: 20111010
  Serious: No
  Sender: FDA-Public Use
  Company Number: US-B.I. PHARMACEUTICALS,INC./RIDGEFIELD-2011-BP-09500BP

PATIENT
  Age: 69 Year
  Sex: Female

DRUGS (10)
  1. PRADAXA [Suspect]
     Indication: ATRIAL FIBRILLATION
     Dosage: 150 MG
     Route: 048
     Dates: start: 20110201
  2. LOTREL [Suspect]
  3. LOTRIL [Concomitant]
     Indication: HYPERTENSION
     Route: 048
  4. CARAFATE [Concomitant]
     Indication: GASTROOESOPHAGEAL REFLUX DISEASE
     Route: 048
  5. CRESTOR [Concomitant]
     Indication: BLOOD CHOLESTEROL INCREASED
     Route: 048
  6. LORAZEPAM [Concomitant]
     Indication: ANXIETY
     Route: 048
  7. MULTAQ [Concomitant]
     Indication: ATRIAL FIBRILLATION
     Route: 048
  8. COQ10 [Concomitant]
     Indication: PROPHYLAXIS
     Route: 048
  9. VITAMIN D [Concomitant]
     Indication: PROPHYLAXIS
     Route: 048
  10. PRILOSEC [Concomitant]
     Indication: GASTROOESOPHAGEAL REFLUX DISEASE
     Route: 048

REACTIONS (2)
  - THROAT IRRITATION [None]
  - DYSPEPSIA [None]
